FAERS Safety Report 24992433 (Version 3)
Quarter: 2025Q2

REPORT INFORMATION
  Report Type: Spontaneous
  Country: JP (occurrence: JP)
  Receive Date: 20250220
  Receipt Date: 20250421
  Transmission Date: 20250717
  Serious: Yes (Hospitalization)
  Sender: AMGEN
  Company Number: JP-DSJP-DS-2025-123534-

PATIENT
  Age: 62 Year
  Sex: Female

DRUGS (17)
  1. DENOSUMAB [Suspect]
     Active Substance: DENOSUMAB
     Indication: Metastases to bone
     Dosage: 120 MG, SINGLE
     Route: 058
     Dates: start: 20250108, end: 20250108
  2. ENHERTU [Suspect]
     Active Substance: FAM-TRASTUZUMAB DERUXTECAN-NXKI
     Indication: HER2 low breast cancer
     Route: 041
     Dates: start: 20250122, end: 20250122
  3. CHLORPHENIRAMINE MALEATE [Concomitant]
     Active Substance: CHLORPHENIRAMINE MALEATE
     Indication: Rhinorrhoea
     Dosage: 2 MG, QD
     Route: 048
     Dates: start: 20250121, end: 20250128
  4. CALCIUM CARBONATE\CHOLECALCIFEROL\MAGNESIUM CARBONATE [Concomitant]
     Active Substance: CALCIUM CARBONATE\CHOLECALCIFEROL\MAGNESIUM CARBONATE
     Indication: Mineral supplementation
     Dosage: 2 DOSAGE FORM, QD
     Route: 048
     Dates: start: 20250108, end: 20250204
  5. MAGNESIUM OXIDE [Concomitant]
     Active Substance: MAGNESIUM OXIDE
     Indication: Constipation
     Route: 048
     Dates: start: 20250127, end: 20250204
  6. OLANZAPINE [Concomitant]
     Active Substance: OLANZAPINE
     Indication: Antiemetic supportive care
     Dosage: 5 MG, QD
     Route: 048
     Dates: start: 20250122, end: 20250125
  7. CALONAL [Concomitant]
     Active Substance: ACETAMINOPHEN
     Indication: Catheter site pain
     Dosage: 400 MG, QD
     Route: 048
     Dates: start: 20250121, end: 20250121
  8. SODIUM BICARBONATE\SODIUM PHOSPHATE, MONOBASIC [Concomitant]
     Active Substance: SODIUM BICARBONATE\SODIUM PHOSPHATE, MONOBASIC
     Indication: Constipation
     Dosage: 1 DOSAGE FORM, QD
     Route: 054
     Dates: start: 20250125, end: 20250125
  9. LINZESS [Concomitant]
     Active Substance: LINACLOTIDE
     Indication: Constipation
     Dosage: 0.25 MG, QD
     Route: 048
     Dates: start: 20250126, end: 20250126
  10. Pursennide [Concomitant]
     Indication: Constipation
     Dosage: 24 MG, QD
     Route: 048
     Dates: start: 20250126, end: 20250126
  11. PALONOSETRON [Concomitant]
     Active Substance: PALONOSETRON
     Indication: Antiemetic supportive care
     Dosage: 0.75 MG, QD
     Route: 042
     Dates: start: 20250122, end: 20250122
  12. DEXAMETHASONE SODIUM PHOSPHATE [Concomitant]
     Active Substance: DEXAMETHASONE SODIUM PHOSPHATE
     Indication: Antiemetic supportive care
     Dosage: 6.6 MG, QD
     Route: 042
     Dates: start: 20250122, end: 20250122
  13. FOSNETUPITANT CHLORIDE HYDROCHLORIDE [Concomitant]
     Active Substance: FOSNETUPITANT CHLORIDE HYDROCHLORIDE
     Indication: Antiemetic supportive care
     Dosage: 235 MG, QD
     Route: 042
     Dates: start: 20250122, end: 20250122
  14. ACETAMINOPHEN [Concomitant]
     Active Substance: ACETAMINOPHEN
     Indication: Infusion related reaction
     Dosage: 1000 MG, QD
     Route: 042
     Dates: start: 20250122, end: 20250122
  15. ACETAMINOPHEN [Concomitant]
     Active Substance: ACETAMINOPHEN
     Indication: Prophylaxis
  16. POLARAMINE [Concomitant]
     Active Substance: DEXCHLORPHENIRAMINE MALEATE
     Indication: Infusion related reaction
     Dosage: 5 MG, QD
     Route: 042
     Dates: start: 20250122, end: 20250122
  17. POLARAMINE [Concomitant]
     Active Substance: DEXCHLORPHENIRAMINE MALEATE
     Indication: Prophylaxis

REACTIONS (3)
  - Stomatitis [Unknown]
  - Conjunctivitis [Unknown]
  - Dermatitis [Unknown]

NARRATIVE: CASE EVENT DATE: 20250129
